FAERS Safety Report 4973308-9 (Version None)
Quarter: 2006Q2

REPORT INFORMATION
  Report Type: 
  Country: None (occurrence: None)
  Receive Date: 20060414
  Receipt Date: 20051005
  Transmission Date: 20061013
  Serious: Yes (Hospitalization, Other)
  Sender: FDA-Public Use
  Company Number: US-MERCK-0510USA05737

PATIENT
  Age: 77 Year
  Sex: Female
  Weight: 60 kg

DRUGS (1)
  1. VIOXX [Suspect]
     Route: 048

REACTIONS (21)
  - ARTHRITIS [None]
  - BACTERIA URINE [None]
  - BRONCHITIS ACUTE [None]
  - CARDIAC VALVE DISEASE [None]
  - CARPAL TUNNEL SYNDROME [None]
  - CONTUSION [None]
  - DEMENTIA [None]
  - DIABETES MELLITUS NON-INSULIN-DEPENDENT [None]
  - DIARRHOEA [None]
  - FALL [None]
  - GALLBLADDER DISORDER [None]
  - GASTROENTERITIS [None]
  - GASTROOESOPHAGEAL REFLUX DISEASE [None]
  - HIATUS HERNIA [None]
  - HYPERKALAEMIA [None]
  - HYPERTENSION [None]
  - ISCHAEMIC STROKE [None]
  - NAUSEA [None]
  - PSYCHOTIC DISORDER [None]
  - UTERINE DISORDER [None]
  - VOMITING [None]
